FAERS Safety Report 4452434-7 (Version None)
Quarter: 2004Q3

REPORT INFORMATION
  Report Type: 
  Country: None (occurrence: None)
  Receive Date: 20040917
  Receipt Date: 20040907
  Transmission Date: 20050211
  Serious: Yes (Other)
  Sender: FDA-Public Use
  Company Number: PHEH2004US09697

PATIENT
  Age: 75 Year
  Sex: Male

DRUGS (13)
  1. AREDIA [Suspect]
     Indication: BONE DENSITY DECREASED
     Dosage: 90 MG, QMO
     Dates: start: 19980101
  2. AREDIA [Suspect]
     Dosage: 90 MG Q3MOS
  3. EPOGEN [Concomitant]
     Indication: ANAEMIA
     Dosage: 40000 UNK, UNK
  4. VITAMIN B-12 [Concomitant]
  5. INFED [Concomitant]
     Dosage: 500 UNK, UNK
  6. AVODART [Concomitant]
     Indication: HYPERTENSION
     Dosage: UNK, UNK
     Dates: start: 20040701
  7. PROSCAR [Concomitant]
     Indication: PROSTATE CANCER
     Dosage: 5 MG, QD
  8. NEURONTIN [Concomitant]
     Indication: ANXIETY
  9. CELEBREX [Concomitant]
     Dosage: 200 MG, BID
  10. HYTRIN [Concomitant]
     Dosage: 4 MG, UNK
  11. ZOCOR [Concomitant]
     Dosage: 40 MG, UNK
     Dates: start: 20040401
  12. DECADRON [Concomitant]
  13. ^ANDROGEN BLOCKADE^ [Concomitant]
     Indication: PROSTATE CANCER
     Dates: start: 19980101, end: 19990101

REACTIONS (4)
  - OSTEOMYELITIS [None]
  - OSTEONECROSIS [None]
  - TOOTH EXTRACTION [None]
  - WOUND DEBRIDEMENT [None]
